FAERS Safety Report 5487931-9 (Version None)
Quarter: 2007Q3

REPORT INFORMATION
  Report Type: 
  Country: None (occurrence: None)
  Receive Date: 20070925
  Receipt Date: 20070622
  Transmission Date: 20080115
  Serious: No
  Sender: FDA-Public Use
  Company Number: 2007US001476

PATIENT
  Age: 85 Year
  Sex: Female

DRUGS (6)
  1. VESICARE [Suspect]
     Indication: POLLAKIURIA
     Dosage: 5 MG, UID/QD
  2. VICODIN [Concomitant]
  3. CYMBALTA [Concomitant]
  4. ASPIRIN [Concomitant]
  5. GLUCOSAMINE (GLUCOSAMINE) [Concomitant]
  6. CHONDROITIN (CHONDROITIN) [Concomitant]

REACTIONS (2)
  - NOCTURIA [None]
  - URINARY RETENTION [None]
